FAERS Safety Report 20837202 (Version 2)
Quarter: 2022Q2

REPORT INFORMATION
  Report Type: Spontaneous
  Country: CZ (occurrence: CZ)
  Receive Date: 20220517
  Receipt Date: 20220523
  Transmission Date: 20220720
  Serious: Yes (Other)
  Sender: FDA-Public Use
  Company Number: None

PATIENT
  Age: 67 Year
  Sex: Male
  Weight: 93 kg

DRUGS (18)
  1. POLYETHYLENE GLYCOL 4000\POTASSIUM CHLORIDE\SODIUM BICARBONATE\SODIUM [Suspect]
     Active Substance: POLYETHYLENE GLYCOL 4000\POTASSIUM CHLORIDE\SODIUM BICARBONATE\SODIUM CHLORIDE\SODIUM SULFATE
     Indication: Off label use
     Dosage: ()
  2. PIPERACILLIN AND TAZOBACTAM [Suspect]
     Active Substance: PIPERACILLIN SODIUM\TAZOBACTAM SODIUM
     Indication: Colitis
     Dosage: 4 G/0.5 G EVERY 8 H ()
     Route: 065
  3. GENTAMICIN [Suspect]
     Active Substance: GENTAMICIN
     Indication: Colitis
     Dosage: 240 MG EVERY 24 H
     Route: 065
  4. METAMIZOL [Suspect]
     Active Substance: METAMIZOLE SODIUM
     Indication: Colitis
     Dosage: 1000 MG
     Route: 065
  5. POLYETHYLENE GLYCOL 4000\POTASSIUM CHLORIDE\SODIUM BICARBONATE\SODIUM [Suspect]
     Active Substance: POLYETHYLENE GLYCOL 4000\POTASSIUM CHLORIDE\SODIUM BICARBONATE\SODIUM CHLORIDE\SODIUM SULFATE
     Indication: Colitis
     Dosage: 0.5 L
     Route: 065
     Dates: start: 202103
  6. METRONIDAZOLE [Suspect]
     Active Substance: METRONIDAZOLE
     Indication: Colitis
     Dosage: 500 MG EVERY 8 H
     Route: 065
  7. PREDNISONE [Concomitant]
     Active Substance: PREDNISONE
  8. PULMICORT TURBUHALER [Concomitant]
     Active Substance: BUDESONIDE
  9. CONTROLOC [Concomitant]
     Active Substance: PANTOPRAZOLE SODIUM
  10. TARKA [Concomitant]
     Active Substance: TRANDOLAPRIL\VERAPAMIL HYDROCHLORIDE
     Dosage: TARKA 180/2 MG
  11. AMOXICILLIN\CLAVULANATE POTASSIUM [Concomitant]
     Active Substance: AMOXICILLIN\CLAVULANATE POTASSIUM
     Dosage: 3X 1.2 G
  12. CEFOTAXIME [Concomitant]
     Active Substance: CEFOTAXIME SODIUM
     Dosage: 3X 2GM
  13. PREDNISONE [Concomitant]
     Active Substance: PREDNISONE
  14. SOLU-MEDROL [Concomitant]
     Active Substance: METHYLPREDNISOLONE SODIUM SUCCINATE
     Dosage: DIE
  15. FUROSEMIDE [Concomitant]
     Active Substance: FUROSEMIDE
     Dosage: 20 MG/2 ML
  16. CLARITHROMYCIN [Concomitant]
     Active Substance: CLARITHROMYCIN
     Dosage: 2X 500 MG
  17. NADROPARIN CALCIUM [Concomitant]
     Active Substance: NADROPARIN CALCIUM
  18. BIOPRON [Concomitant]
     Dosage: 9 BILLION CFU CPS

REACTIONS (2)
  - Off label use [Unknown]
  - Clostridium difficile colitis [Recovered/Resolved]

NARRATIVE: CASE EVENT DATE: 20210301
